FAERS Safety Report 8291140-8 (Version None)
Quarter: 2012Q2

REPORT INFORMATION
  Report Type: 
  Country: None (occurrence: None)
  Receive Date: 20120417
  Receipt Date: 20120403
  Transmission Date: 20120825
  Serious: Yes (Other)
  Sender: FDA-Public Use
  Company Number: ES-CELGENEUS-144-21880-12040409

PATIENT
  Sex: Female

DRUGS (2)
  1. CYCLOPHOSPHAMIDE [Suspect]
     Route: 065
     Dates: start: 20110706
  2. REVLIMID [Suspect]
     Route: 048
     Dates: start: 20110706

REACTIONS (1)
  - JAUNDICE CHOLESTATIC [None]
